FAERS Safety Report 25265847 (Version 1)
Quarter: 2025Q2

REPORT INFORMATION
  Report Type: Report from Study
  Country: CA (occurrence: CA)
  Receive Date: 20250503
  Receipt Date: 20250503
  Transmission Date: 20250717
  Serious: Yes (Other)
  Sender: Alvotech
  Company Number: CA-JAMP PHARMA CORPORATION-2023-JAM-CA-00145

PATIENT
  Age: 52 Year
  Sex: Male

DRUGS (2)
  1. SIMLANDI [Suspect]
     Active Substance: ADALIMUMAB-RYVK
     Indication: Crohn^s disease
     Route: 065
     Dates: start: 20230102
  2. SIMLANDI [Suspect]
     Active Substance: ADALIMUMAB-RYVK
     Indication: Crohn^s disease
     Dosage: 40 MILLIGRAM, WEEKLY
     Route: 058
     Dates: start: 20230102

REACTIONS (5)
  - Stoma closure [Unknown]
  - Stoma obstruction [Unknown]
  - Abscess [Unknown]
  - Insurance issue [Unknown]
  - Product dose omission issue [Unknown]
